FAERS Safety Report 4516720-4 (Version None)
Quarter: 2005Q1

REPORT INFORMATION
  Report Type: 
  Country: None (occurrence: None)
  Receive Date: 20041029
  Receipt Date: 20040805
  Transmission Date: 20050727
  Serious: No
  Sender: FDA-Public Use
  Company Number: 2004-119019-NL

PATIENT
  Age: 37 Year
  Sex: Female
  Weight: 49.9 kg

DRUGS (5)
  1. NUVARING [Suspect]
     Indication: CONTRACEPTION
     Dosage: DF DAILY VAGINAL
     Route: 067
     Dates: start: 20020701
  2. MULTI-VITAMINS [Concomitant]
  3. 100MG VIT C [Concomitant]
  4. 400 IU VIT E [Concomitant]
  5. CALCIUM + VIT D [Concomitant]

REACTIONS (1)
  - METRORRHAGIA [None]
